FAERS Safety Report 7434294-5 (Version None)
Quarter: 2011Q2

REPORT INFORMATION
  Report Type: 
  Country: None (occurrence: None)
  Receive Date: 20110425
  Receipt Date: 20110419
  Transmission Date: 20111010
  Serious: No
  Sender: FDA-Public Use
  Company Number: US-PFIZER INC-2011086411

PATIENT
  Sex: Male
  Weight: 88.43 kg

DRUGS (5)
  1. RANITIDINE [Concomitant]
     Indication: DYSPEPSIA
     Dosage: 150 MG, 1X/DAY
     Route: 048
     Dates: start: 20101201
  2. PRAVASTATIN [Concomitant]
     Indication: DYSPEPSIA
     Dosage: 40 MG, 1X/DAY
     Route: 048
     Dates: start: 20101201
  3. PRAVASTATIN [Concomitant]
     Indication: BLOOD CHOLESTEROL ABNORMAL
  4. CHANTIX [Suspect]
     Indication: SMOKING CESSATION THERAPY
     Dosage: 0.5 MG, 1X/DAY
     Route: 048
     Dates: start: 20110417
  5. RANITIDINE [Concomitant]
     Indication: BLOOD CHOLESTEROL ABNORMAL

REACTIONS (5)
  - PAIN IN EXTREMITY [None]
  - HEADACHE [None]
  - CHEST PAIN [None]
  - MIGRAINE [None]
  - PHOTOPSIA [None]
